FAERS Safety Report 6209200-1 (Version None)
Quarter: 2009Q2

REPORT INFORMATION
  Report Type: 
  Country: None (occurrence: None)
  Receive Date: 20090529
  Receipt Date: 20090528
  Transmission Date: 20091009
  Serious: Yes (Hospitalization)
  Sender: FDA-Public Use
  Company Number: JP-B.I. PHARMACEUTICALS,INC./RIDGEFIELD-2008-BP-16819NB

PATIENT
  Sex: Male
  Weight: 58 kg

DRUGS (6)
  1. MICARDIS [Suspect]
     Indication: HYPERTENSION
     Dosage: 40MG
     Route: 048
     Dates: start: 20060926
  2. FAMOSTAGINE [Concomitant]
     Dosage: 30MG
     Route: 048
     Dates: start: 20060822
  3. THYRADIN S [Concomitant]
     Dosage: 100MG
     Route: 048
     Dates: start: 20060822
  4. FLUVOXAMINE MALEATE [Concomitant]
     Dosage: 75MG
     Route: 048
     Dates: start: 20060822
  5. GASMOTIN [Concomitant]
     Dosage: 15MG
     Route: 048
     Dates: start: 20060822
  6. MAGLAX [Concomitant]
     Dosage: 990MG
     Route: 048
     Dates: start: 20060822

REACTIONS (3)
  - DEMENTIA [None]
  - FALL [None]
  - FEMORAL NECK FRACTURE [None]
